FAERS Safety Report 4883223-7 (Version None)
Quarter: 2006Q1

REPORT INFORMATION
  Report Type: 
  Country: None (occurrence: None)
  Receive Date: 20060118
  Receipt Date: 20051209
  Transmission Date: 20060701
  Serious: Yes (Death)
  Sender: FDA-Public Use
  Company Number: US-BRISTOL-MYERS SQUIBB COMPANY-13212519

PATIENT
  Age: 66 Year
  Sex: Female

DRUGS (1)
  1. ERBITUX [Suspect]
     Indication: OVARIAN CANCER
     Dosage: RECEIVED 7 TREATMENTS.
     Route: 042
     Dates: start: 20041119, end: 20050610

REACTIONS (1)
  - OVARIAN CANCER [None]
